FAERS Safety Report 5870790-X (Version None)
Quarter: 2008Q3

REPORT INFORMATION
  Report Type: 
  Country: None (occurrence: None)
  Receive Date: 20080904
  Receipt Date: 20080825
  Transmission Date: 20090109
  Serious: Yes (Other)
  Sender: FDA-Public Use
  Company Number: DE-ABBOTT-08P-062-0472963-00

PATIENT
  Sex: Female

DRUGS (1)
  1. ENANTONE 3.75 MG [Suspect]
     Indication: DRUG USE FOR UNKNOWN INDICATION
     Route: 058
     Dates: start: 20060626

REACTIONS (1)
  - CEPHALO-PELVIC DISPROPORTION [None]
